FAERS Safety Report 16388433 (Version 13)
Quarter: 2021Q4

REPORT INFORMATION
  Report Type: Spontaneous
  Country: US (occurrence: US)
  Receive Date: 20190604
  Receipt Date: 20211214
  Transmission Date: 20220304
  Serious: Yes (Other)
  Sender: FDA-Public Use
  Company Number: US-PFIZER INC-2019236544

PATIENT
  Age: 58 Year
  Sex: Female

DRUGS (2)
  1. XELJANZ XR [Suspect]
     Active Substance: TOFACITINIB CITRATE
     Indication: Rheumatoid arthritis
     Dosage: 11 MG, ONCE DAILY
     Route: 048
     Dates: start: 2018
  2. TYLENOL [Concomitant]
     Active Substance: ACETAMINOPHEN

REACTIONS (30)
  - Rheumatoid arthritis [Unknown]
  - Joint destruction [Unknown]
  - Upper respiratory tract infection [Unknown]
  - Back pain [Unknown]
  - Condition aggravated [Unknown]
  - Joint swelling [Recovered/Resolved]
  - Peripheral swelling [Unknown]
  - Arthralgia [Unknown]
  - Malaise [Unknown]
  - Influenza [Unknown]
  - Chills [Unknown]
  - Nasopharyngitis [Not Recovered/Not Resolved]
  - Pyrexia [Unknown]
  - Muscle spasms [Unknown]
  - Balance disorder [Unknown]
  - Heart rate increased [Unknown]
  - Nasal congestion [Unknown]
  - Throat irritation [Unknown]
  - Cough [Unknown]
  - Vitamin D decreased [Unknown]
  - Bronchitis [Unknown]
  - Gait disturbance [Unknown]
  - Pain [Unknown]
  - Illness [Unknown]
  - Myalgia [Unknown]
  - Pain in extremity [Unknown]
  - Bone density decreased [Unknown]
  - Intentional dose omission [Unknown]
  - Headache [Unknown]
  - Bronchitis viral [Unknown]
